FAERS Safety Report 21279247 (Version 1)
Quarter: 2022Q3

REPORT INFORMATION
  Report Type: Spontaneous
  Country: UA (occurrence: UA)
  Receive Date: 20220901
  Receipt Date: 20220901
  Transmission Date: 20221026
  Serious: Yes (Hospitalization, Other)
  Sender: FDA-Public Use
  Company Number: None

PATIENT
  Age: 5 Year
  Sex: Male

DRUGS (3)
  1. IBUPROFEN [Suspect]
     Active Substance: IBUPROFEN
     Indication: Pyrexia
     Dosage: 10 MILLIGRAM/KILOGRAM (EVERY 8 HOUR)
     Route: 065
  2. BRILLIANT GREEN [Concomitant]
     Active Substance: BRILLIANT GREEN
     Indication: Rash papular
     Dosage: UNK
     Route: 065
  3. BRILLIANT GREEN [Concomitant]
     Active Substance: BRILLIANT GREEN
     Indication: Rash pustular

REACTIONS (1)
  - Cellulitis [Recovered/Resolved]
